FAERS Safety Report 22069582 (Version 1)
Quarter: 2023Q1

REPORT INFORMATION
  Report Type: Spontaneous
  Country: US (occurrence: None)
  Receive Date: 20230306
  Receipt Date: 20230306
  Transmission Date: 20230418
  Serious: Yes (Hospitalization)
  Sender: FDA-Public Use
  Company Number: None

PATIENT
  Age: 38 Year
  Weight: 61.23 kg

DRUGS (1)
  1. NEXPLANON [Suspect]
     Active Substance: ETONOGESTREL
     Dates: start: 20200901, end: 20220201

REACTIONS (8)
  - Pain [None]
  - Feeling abnormal [None]
  - Fatigue [None]
  - Irritability [None]
  - Menstruation irregular [None]
  - Heavy menstrual bleeding [None]
  - Surgery [None]
  - Device issue [None]

NARRATIVE: CASE EVENT DATE: 20210801
